FAERS Safety Report 4672794-1 (Version None)
Quarter: 2005Q2

REPORT INFORMATION
  Report Type: 
  Country: None (occurrence: None)
  Receive Date: 20050524
  Receipt Date: 20050517
  Transmission Date: 20051028
  Serious: Yes (Hospitalization)
  Sender: FDA-Public Use
  Company Number: US-BRISTOL-MYERS SQUIBB COMPANY-12971644

PATIENT
  Sex: Male

DRUGS (4)
  1. PACLITAXEL [Suspect]
     Indication: PROSTATE CANCER
     Dates: start: 20030710
  2. ETOPOSIDE [Suspect]
     Indication: PROSTATE CANCER
     Dates: start: 20030710, end: 20030720
  3. ESTRACYT [Suspect]
     Indication: PROSTATE CANCER
     Dates: start: 20030710, end: 20030720
  4. RADIATION THERAPY [Suspect]
     Indication: PROSTATE CANCER
     Dates: start: 20030612

REACTIONS (2)
  - NEUTROPENIA [None]
  - PYREXIA [None]
